FAERS Safety Report 16779510 (Version 1)
Quarter: 2019Q3

REPORT INFORMATION
  Report Type: Spontaneous
  Country: NL (occurrence: NL)
  Receive Date: 20190906
  Receipt Date: 20190906
  Transmission Date: 20191005
  Serious: Yes (Other)
  Sender: FDA-Public Use
  Company Number: NL-TEVA-2019-NL-1101809

PATIENT
  Age: 51 Year
  Sex: Female
  Weight: 70 kg

DRUGS (1)
  1. TAMOXIFEN [Suspect]
     Active Substance: TAMOXIFEN
     Indication: BREAST CANCER
     Dosage: 1DD 10 MG
     Dates: start: 20190707

REACTIONS (7)
  - Pain [Unknown]
  - Arthralgia [Recovering/Resolving]
  - Hot flush [Recovering/Resolving]
  - Oedema [Recovering/Resolving]
  - Neuropathy peripheral [Unknown]
  - Musculoskeletal stiffness [Recovering/Resolving]
  - Blister [Recovering/Resolving]
